FAERS Safety Report 5549658-4 (Version None)
Quarter: 2007Q4

REPORT INFORMATION
  Report Type: 
  Country: None (occurrence: None)
  Receive Date: 20071128
  Receipt Date: 20070814
  Transmission Date: 20080405
  Serious: Yes (Other)
  Sender: FDA-Public Use
  Company Number: 2007067659

PATIENT

DRUGS (4)
  1. LIPITOR [Suspect]
  2. CHANTIX [Suspect]
  3. SPIRIVA [Suspect]
  4. TRICOR [Suspect]

REACTIONS (1)
  - URINARY RETENTION [None]
